FAERS Safety Report 24830399 (Version 2)
Quarter: 2025Q1

REPORT INFORMATION
  Report Type: Spontaneous
  Country: US (occurrence: US)
  Receive Date: 20250110
  Receipt Date: 20250125
  Transmission Date: 20250408
  Serious: No
  Sender: MERCK
  Company Number: US-009507513-2501USA002015

PATIENT
  Sex: Female
  Weight: 58.957 kg

DRUGS (23)
  1. WINREVAIR [Suspect]
     Active Substance: SOTATERCEPT-CSRK
     Route: 058
     Dates: start: 2024
  2. TREPROSTINIL [Suspect]
     Active Substance: TREPROSTINIL
     Route: 058
     Dates: start: 20210618
  3. ZYRTEC [Concomitant]
     Active Substance: CETIRIZINE HYDROCHLORIDE
  4. VITAMIN C [Concomitant]
     Active Substance: ASCORBIC ACID
  5. MIDODRINE HYDROCHLORIDE [Concomitant]
     Active Substance: MIDODRINE HYDROCHLORIDE
  6. FLUTICASONE PROPIONATE [Concomitant]
     Active Substance: FLUTICASONE PROPIONATE
  7. FUROSEMIDE [Concomitant]
     Active Substance: FUROSEMIDE
  8. PILOCARPINE [Concomitant]
     Active Substance: PILOCARPINE
  9. PRAVASTATIN [Concomitant]
     Active Substance: PRAVASTATIN
  10. PREDNISONE [Concomitant]
     Active Substance: PREDNISONE
  11. IRON [Concomitant]
     Active Substance: IRON
  12. OPSUMIT [Concomitant]
     Active Substance: MACITENTAN
  13. ADCIRCA [Concomitant]
     Active Substance: TADALAFIL
  14. TRAMADOL [Concomitant]
     Active Substance: TRAMADOL
  15. OXYGEN [Concomitant]
     Active Substance: OXYGEN
  16. MUCINEX [Concomitant]
     Active Substance: GUAIFENESIN
  17. MINERALS\VITAMINS [Concomitant]
     Active Substance: MINERALS\VITAMINS
  18. COENXYME Q10 [Concomitant]
  19. PREVACID [Concomitant]
     Active Substance: LANSOPRAZOLE
  20. ASPIRIN [Concomitant]
     Active Substance: ASPIRIN
  21. PEPERMINT JABER [Concomitant]
  22. TYLENOL [Concomitant]
     Active Substance: ACETAMINOPHEN
  23. SPIRONOLACTONE AND HYDROCHLOROTHIAZIDE [Concomitant]
     Active Substance: HYDROCHLOROTHIAZIDE\SPIRONOLACTONE

REACTIONS (2)
  - Injection site erythema [Recovered/Resolved]
  - Epistaxis [Unknown]

NARRATIVE: CASE EVENT DATE: 20240101
